FAERS Safety Report 9896368 (Version 1)
Quarter: 2014Q1

REPORT INFORMATION
  Report Type: Spontaneous
  Country: US (occurrence: US)
  Receive Date: 20140213
  Receipt Date: 20140213
  Transmission Date: 20141002
  Serious: No
  Sender: FDA-Public Use
  Company Number: US-BRISTOL-MYERS SQUIBB COMPANY-19097799

PATIENT
  Age: 51 Year
  Sex: Female
  Weight: 86.17 kg

DRUGS (5)
  1. ORENCIA FOR INJ 250 MG/VIAL [Suspect]
     Route: 042
  2. PLAQUENIL [Concomitant]
     Dosage: TABS
  3. MOBIC [Concomitant]
     Dosage: TAB
  4. VITAMIN D [Concomitant]
     Dosage: CAPS?1 DF=1000 UNIT
  5. NICORETTE [Concomitant]
     Dosage: GUM 2 MG ORIG

REACTIONS (1)
  - Aphthous stomatitis [Unknown]
